FAERS Safety Report 4942688-2 (Version None)
Quarter: 2006Q1

REPORT INFORMATION
  Report Type: 
  Country: None (occurrence: None)
  Receive Date: 20060309
  Receipt Date: 20060221
  Transmission Date: 20060701
  Serious: Yes (Hospitalization, Other)
  Sender: FDA-Public Use
  Company Number: 2006BL001057

PATIENT
  Age: 78 Year
  Sex: Female

DRUGS (4)
  1. ZYKLOLAT EDO AUGENTROPFEN (CYCLOPENTOLATE HYDROCHLORIDE) [Suspect]
     Indication: POST PROCEDURAL COMPLICATION
     Dosage: 1 APPLICATION; DAILY; TOPICAL
     Route: 061
     Dates: start: 20051030, end: 20051214
  2. ZYKLOLAT EDO AUGENTROPFEN (CYCLOPENTOLATE HYDROCHLORIDE) [Suspect]
     Indication: PROPHYLAXIS
     Dosage: 1 APPLICATION; DAILY; TOPICAL
     Route: 061
     Dates: start: 20051030, end: 20051214
  3. FLOXAL AUGENSALBE [Concomitant]
  4. PREDNISOLONE [Concomitant]

REACTIONS (10)
  - AGITATION [None]
  - DEPRESSED MOOD [None]
  - DIZZINESS [None]
  - DRY MOUTH [None]
  - GASTROINTESTINAL DISORDER [None]
  - MALAISE [None]
  - MYDRIASIS [None]
  - NAUSEA [None]
  - POST PROCEDURAL COMPLICATION [None]
  - SOMNOLENCE [None]
